FAERS Safety Report 8776235 (Version 1)
Quarter: 2012Q4

REPORT INFORMATION
  Report Type: 
  Country: US (occurrence: US)
  Receive Date: 20120910
  Receipt Date: 20120910
  Transmission Date: 20130627
  Serious: No
  Sender: FDA-Public Use
  Company Number: US-PFIZER INC-2012221536

PATIENT
  Age: 65 Year
  Sex: Male
  Weight: 68.03 kg

DRUGS (4)
  1. DILANTIN [Suspect]
     Indication: CONVULSION
     Dosage: 340 mg, daily
  2. LACOSAMIDE [Interacting]
     Indication: CONVULSION
     Dosage: 150 mg, 2x/day
     Dates: start: 2012
  3. ACETYLSALICYLIC ACID [Concomitant]
     Indication: CARDIAC DISORDER
     Dosage: UNK, daily
  4. MULTIVITAMINS [Concomitant]
     Indication: SUPPLEMENTATION THERAPY
     Dosage: UNK, daily

REACTIONS (3)
  - Drug interaction [Unknown]
  - Feeling abnormal [Not Recovered/Not Resolved]
  - Anticonvulsant drug level increased [Unknown]
